FAERS Safety Report 6284657-9 (Version None)
Quarter: 2009Q3

REPORT INFORMATION
  Report Type: 
  Country: None (occurrence: None)
  Receive Date: 20090727
  Receipt Date: 20090505
  Transmission Date: 20100115
  Serious: No
  Sender: FDA-Public Use
  Company Number: US-BAYER-200912149NA

PATIENT
  Age: 27 Year
  Sex: Female
  Weight: 72 kg

DRUGS (1)
  1. MIRENA [Suspect]
     Indication: CONTRACEPTION
     Dosage: CONTINUOUS
     Route: 015
     Dates: start: 20080213, end: 20080618

REACTIONS (6)
  - ABDOMINAL PAIN [None]
  - HEADACHE [None]
  - NAUSEA [None]
  - PROCEDURAL PAIN [None]
  - VAGINAL HAEMORRHAGE [None]
  - VULVOVAGINAL MYCOTIC INFECTION [None]
